FAERS Safety Report 5885013-5 (Version None)
Quarter: 2008Q3

REPORT INFORMATION
  Report Type: 
  Country: None (occurrence: None)
  Receive Date: 20080912
  Receipt Date: 20080908
  Transmission Date: 20090109
  Serious: No
  Sender: FDA-Public Use
  Company Number: 1022556-2008-00607

PATIENT
  Sex: Female
  Weight: 72.1219 kg

DRUGS (1)
  1. CAPZASIN NO-MESS LIQUID 1 OZ [Suspect]
     Indication: ANALGESIA
     Dosage: 1X, TOPICAL, ACCIDENTAL OCULAR EXPOSURE
     Route: 061
     Dates: start: 20080713

REACTIONS (7)
  - ACCIDENTAL EXPOSURE [None]
  - DRUG HYPERSENSITIVITY [None]
  - EYE IRRITATION [None]
  - KERATITIS [None]
  - LACRIMATION INCREASED [None]
  - PHOTOPHOBIA [None]
  - PUNCTATE KERATITIS [None]
